FAERS Safety Report 9437935 (Version 1)
Quarter: 2013Q3

REPORT INFORMATION
  Report Type: Spontaneous
  Country: US (occurrence: US)
  Receive Date: 20130802
  Receipt Date: 20130802
  Transmission Date: 20140515
  Serious: No
  Sender: FDA-Public Use
  Company Number: US-BRISTOL-MYERS SQUIBB COMPANY-18896308

PATIENT
  Age: 84 Year
  Sex: Female
  Weight: 70.29 kg

DRUGS (4)
  1. COUMADIN [Suspect]
     Dosage: THREE DAYS.?2.5 MG FOR ONE DAY AND REPEATS THE CYCLE
  2. WARFARIN SODIUM [Suspect]
  3. CARDIZEM [Concomitant]
     Indication: BLOOD PRESSURE
  4. LISINOPRIL [Concomitant]
     Indication: BLOOD PRESSURE

REACTIONS (3)
  - International normalised ratio abnormal [Unknown]
  - Heart rate irregular [Unknown]
  - Weight increased [Unknown]
